FAERS Safety Report 7044890-5 (Version None)
Quarter: 2010Q4

REPORT INFORMATION
  Report Type: 
  Country: None (occurrence: None)
  Receive Date: 20101014
  Receipt Date: 20101011
  Transmission Date: 20110411
  Serious: Yes (Death, Life-Threatening, Hospitalization, Other)
  Sender: FDA-Public Use
  Company Number: PHFR2010GB03638

PATIENT
  Sex: Male

DRUGS (2)
  1. CLOZARIL [Suspect]
     Indication: SCHIZOPHRENIA
     Dosage: UNK
     Route: 048
     Dates: start: 20060608
  2. CLOZARIL [Suspect]
     Dosage: 400 MG, UNK
     Route: 048

REACTIONS (8)
  - FALL [None]
  - HIP SURGERY [None]
  - JOINT INJURY [None]
  - LUNG NEOPLASM MALIGNANT [None]
  - METASTASES TO LYMPH NODES [None]
  - METASTATIC SQUAMOUS CELL CARCINOMA [None]
  - PERICARDIAL EFFUSION MALIGNANT [None]
  - PULMONARY MASS [None]
